FAERS Safety Report 9372243 (Version 2)
Quarter: 2013Q3

REPORT INFORMATION
  Report Type: Spontaneous
  Country: US (occurrence: None)
  Receive Date: 20130617
  Receipt Date: 20130718
  Transmission Date: 20140515
  Serious: Yes (Other)
  Sender: FDA-Public Use
  Company Number: 2013PROUSA02875

PATIENT
  Age: 78 Year
  Sex: Male
  Weight: 83.5 kg

DRUGS (13)
  1. PROVENGE (SIPULEUCEL-T) SUSPENSION [Suspect]
     Indication: PROSTATE CANCER METASTATIC
     Dosage: SINGLE
     Route: 042
     Dates: start: 20130201, end: 20130201
  2. HYDROCODONE BITARTRATE AND ACETAMINOPHEN [Concomitant]
  3. SIMVASTATIN [Concomitant]
  4. POLYETHYLENE GLYCOL [Concomitant]
  5. IBUPROFEN [Concomitant]
  6. ZYTIGA [Concomitant]
  7. ZOLEDRONIC ACID [Concomitant]
  8. CALCIUM + VITAMIN D 3 [Concomitant]
  9. LUPRON DEPOT [Concomitant]
  10. MULTIVITAMIN [Concomitant]
  11. PREDNISONE [Concomitant]
  12. SENOKOT [Concomitant]
  13. TRIAMCINOLONG ACETONIDE [Concomitant]

REACTIONS (2)
  - Pulmonary embolism [None]
  - Deep vein thrombosis [None]
